FAERS Safety Report 23931472 (Version 1)
Quarter: 2024Q2

REPORT INFORMATION
  Report Type: Other
  Country: US (occurrence: None)
  Receive Date: 20240603
  Receipt Date: 20240603
  Transmission Date: 20240716
  Serious: Yes (Hospitalization)
  Sender: FDA-Public Use
  Company Number: US-ROCHE-3568762

PATIENT
  Age: 61 Year
  Sex: Female

DRUGS (9)
  1. OCREVUS [Suspect]
     Active Substance: OCRELIZUMAB
     Indication: Relapsing-remitting multiple sclerosis
     Dosage: THEN 600 MG EVERY 26 WEEKS
     Route: 042
     Dates: start: 20191025
  2. ACETAMINOPHEN [Concomitant]
     Active Substance: ACETAMINOPHEN
  3. XANAX [Concomitant]
     Active Substance: ALPRAZOLAM
  4. BACLOFEN [Concomitant]
     Active Substance: BACLOFEN
  5. LOTENSIN [Concomitant]
     Active Substance: BENAZEPRIL HYDROCHLORIDE
  6. LEXAPRO [Concomitant]
     Active Substance: ESCITALOPRAM OXALATE
  7. NEURONTIN [Concomitant]
     Active Substance: GABAPENTIN
  8. PROVIGIL [Concomitant]
     Active Substance: MODAFINIL
  9. CRESTOR [Concomitant]
     Active Substance: ROSUVASTATIN CALCIUM

REACTIONS (3)
  - COVID-19 [Unknown]
  - Fatigue [Unknown]
  - Hypoxia [Unknown]
